FAERS Safety Report 14155821 (Version 5)
Quarter: 2018Q1

REPORT INFORMATION
  Report Type: Report from Study
  Country: US (occurrence: US)
  Receive Date: 20171103
  Receipt Date: 20180119
  Transmission Date: 20180508
  Serious: Yes (Death, Other)
  Sender: FDA-Public Use
  Company Number: US-RETROPHIN, INC.-2017RTN00117

PATIENT
  Age: 0 Year
  Sex: Male
  Weight: 8.74 kg

DRUGS (10)
  1. CHOLIC ACID [Suspect]
     Active Substance: CHOLIC ACID
     Dosage: 50 MG, 1X/DAY
     Route: 048
     Dates: start: 20170825, end: 201711
  2. POLY-VI-SOL WITH IRON [Concomitant]
     Active Substance: IRON\VITAMINS
     Dosage: 10 MG, 1X/DAY
     Route: 048
     Dates: start: 2017
  3. LEVETIRACETAM. [Concomitant]
     Active Substance: LEVETIRACETAM
     Dosage: 300 MG, 2X/DAY
     Route: 048
     Dates: start: 20170905
  4. CLONAZEPAM. [Concomitant]
     Active Substance: CLONAZEPAM
     Dosage: 0.125 MG EVERY 8 HOURS AS NEEDED FOR SEIZURES
     Route: 048
     Dates: start: 20170830
  5. LORAZEPAM. [Concomitant]
     Active Substance: LORAZEPAM
     Dosage: 0.2 MG, EVERY 4-6 HOURS AS NEEDED
     Dates: start: 20170822
  6. CHOLIC ACID [Suspect]
     Active Substance: CHOLIC ACID
     Dosage: 100 MG, 1X/DAY
     Route: 048
     Dates: start: 201711
  7. LEVETIRACETAM. [Concomitant]
     Active Substance: LEVETIRACETAM
     Dosage: 250 MG, 2X/DAY
     Route: 048
     Dates: start: 20170830, end: 20170905
  8. ELECARE [Concomitant]
     Dosage: 2.5 TSP WITH 5 OUNCES OF HUMAN MILK, AS DIRECTED
     Dates: start: 20170914
  9. CHOLIC ACID [Suspect]
     Active Substance: CHOLIC ACID
     Indication: CEREBROHEPATORENAL SYNDROME
     Dosage: 50 MG, 1X/DAY
     Route: 048
     Dates: start: 20170825, end: 201711
  10. TRILEPTAL [Concomitant]
     Active Substance: OXCARBAZEPINE
     Dosage: 150 MG, 2X/DAY
     Route: 048
     Dates: start: 20170914

REACTIONS (15)
  - Heart rate decreased [Unknown]
  - Hordeolum [Not Recovered/Not Resolved]
  - Blood alkaline phosphatase increased [Recovered/Resolved]
  - Mouth haemorrhage [Unknown]
  - Nystagmus [Unknown]
  - Prothrombin time prolonged [Recovering/Resolving]
  - Aspartate aminotransferase increased [Recovering/Resolving]
  - Gastrooesophageal reflux disease [Recovering/Resolving]
  - Respiratory symptom [Fatal]
  - Respiratory failure [Unknown]
  - Bilirubin conjugated increased [Not Recovered/Not Resolved]
  - Seizure [Not Recovered/Not Resolved]
  - Gamma-glutamyltransferase increased [Not Recovered/Not Resolved]
  - International normalised ratio increased [Recovered/Resolved]
  - Alanine aminotransferase increased [Recovering/Resolving]

NARRATIVE: CASE EVENT DATE: 2017
